FAERS Safety Report 7223467-2 (Version None)
Quarter: 2011Q1

REPORT INFORMATION
  Report Type: 
  Country: None (occurrence: None)
  Receive Date: 20110112
  Receipt Date: 20100721
  Transmission Date: 20110831
  Serious: No
  Sender: FDA-Public Use
  Company Number: US-ALLERGAN-1009487US

PATIENT
  Age: 62 Year
  Sex: Female

DRUGS (2)
  1. RESTASIS [Suspect]
     Indication: DRY EYE
     Dosage: UNK
     Route: 047
     Dates: start: 20100701, end: 20100701
  2. TOBRAMYCIN [Concomitant]
     Indication: EYE INFECTION
     Dosage: 1 GTT, QID
     Route: 047

REACTIONS (1)
  - EYE IRRITATION [None]
